FAERS Safety Report 12386497 (Version 1)
Quarter: 2016Q2

REPORT INFORMATION
  Report Type: Spontaneous
  Country: US (occurrence: US)
  Receive Date: 20160519
  Receipt Date: 20160519
  Transmission Date: 20160815
  Serious: Yes (Other)
  Sender: FDA-Public Use
  Company Number: US-BAYER-2016-095373

PATIENT
  Sex: Female

DRUGS (3)
  1. DOXICYCLIN [Concomitant]
     Active Substance: DOXYCYCLINE
     Indication: ROSACEA
  2. FINACEA [Suspect]
     Active Substance: AZELAIC ACID
     Indication: ROSACEA
     Dosage: UNK
  3. METROGEL [Concomitant]
     Active Substance: METRONIDAZOLE
     Dosage: UNK

REACTIONS (1)
  - Bacterial infection [None]
